FAERS Safety Report 11231009 (Version 1)
Quarter: 2015Q2

REPORT INFORMATION
  Report Type: Spontaneous
  Country: US (occurrence: None)
  Receive Date: 20150629
  Receipt Date: 20150629
  Transmission Date: 20150821
  Serious: Yes (Other)
  Sender: FDA-Public Use
  Company Number: None

PATIENT
  Age: 67 Year
  Sex: Male
  Weight: 83.92 kg

DRUGS (4)
  1. CATHETER [Concomitant]
     Active Substance: DEVICE
  2. MULTI VITAMINS [Concomitant]
  3. SUPREP BOWEL PREP [Suspect]
     Active Substance: MAGNESIUM SULFATE\POTASSIUM SULFATE\SODIUM SULFATE
     Indication: PRODUCT USED FOR UNKNOWN INDICATION
     Route: 048
  4. ROLAIDS [Concomitant]
     Active Substance: CALCIUM CARBONATE\MAGNESIUM HYDROXIDE

REACTIONS (6)
  - Muscle spasms [None]
  - Bladder irritation [None]
  - Anuria [None]
  - Urethral pain [None]
  - Bladder pain [None]
  - Groin pain [None]

NARRATIVE: CASE EVENT DATE: 20150617
